FAERS Safety Report 17873717 (Version 2)
Quarter: 2020Q3

REPORT INFORMATION
  Report Type: Report from Study
  Country: None (occurrence: BR)
  Receive Date: 20200609
  Receipt Date: 20200914
  Transmission Date: 20201103
  Serious: Yes (Hospitalization)
  Sender: FDA-Public Use
  Company Number: BR-ABBVIE-20P-020-3436019-00

PATIENT
  Sex: Female
  Weight: 68 kg

DRUGS (11)
  1. QUETIAPINE HEMIFUMARATE [Concomitant]
     Active Substance: QUETIAPINE FUMARATE
     Indication: DEMENTIA
     Dosage: 100 MG AT NIGHT AND 50 MG IN THE MORNING
     Route: 048
     Dates: start: 20200528
  2. CAPTOPRIL. [Concomitant]
     Active Substance: CAPTOPRIL
     Indication: HYPERTENSION
  3. DEPAKOTE ER [Suspect]
     Active Substance: DIVALPROEX SODIUM
     Dosage: TAKEN AT 9:00H, 15:00H AND 21:00H; 3 TABLETS DAILY
     Route: 065
     Dates: start: 202003
  4. MIRTAZAPINE. [Concomitant]
     Active Substance: MIRTAZAPINE
     Indication: MENTAL DISORDER
  5. QUETIAPINE HEMIFUMARATE [Concomitant]
     Active Substance: QUETIAPINE FUMARATE
     Dosage: START DATE: AROUND 1 YEAR AND A HALF AGO; INTRODUCTION OF F.STRENGTH 50 MG 5 DAYS AGO
     Route: 048
     Dates: end: 20200527
  6. DEPAKOTE ER [Suspect]
     Active Substance: DIVALPROEX SODIUM
     Dosage: DOSE WAS REDUCED DURING HOSPITALIZATION AND THEN INCREASED BACK
     Route: 048
     Dates: start: 202001, end: 202003
  7. VITAMIN C [Concomitant]
     Active Substance: ASCORBIC ACID
     Indication: LIMB OPERATION
     Dosage: TAKEN AT LUNCH; ONGOING
     Route: 048
     Dates: start: 202002
  8. DEPAKOTE ER [Suspect]
     Active Substance: DIVALPROEX SODIUM
     Indication: SEIZURE
     Dosage: START DATE: MIDDLE OF 2019; 3 TABLETS DAILY ; DOSE REDUCED IN HOSPITAL
     Route: 048
     Dates: start: 2019, end: 202001
  9. MIRTAZAPINE. [Concomitant]
     Active Substance: MIRTAZAPINE
     Indication: DEMENTIA
     Dosage: START DATE: 2 MONTHS AGO
     Route: 048
     Dates: start: 2020
  10. CALTREN [Concomitant]
     Active Substance: NITRENDIPINE
     Indication: HYPERTENSION
     Dosage: TAKEN AT 15:00H;
  11. DIOVAN [Concomitant]
     Active Substance: VALSARTAN
     Indication: HYPERTENSION
     Dosage: MORNINING/NIGHT;
     Route: 048
     Dates: start: 2010

REACTIONS (5)
  - Anaemia [Unknown]
  - Pathological fracture [Recovering/Resolving]
  - Inappropriate schedule of product administration [Unknown]
  - Off label use [Unknown]
  - Fall [Recovering/Resolving]

NARRATIVE: CASE EVENT DATE: 2019
